FAERS Safety Report 7951164-4 (Version None)
Quarter: 2011Q4

REPORT INFORMATION
  Report Type: 
  Country: None (occurrence: None)
  Receive Date: 20111201
  Receipt Date: 20111118
  Transmission Date: 20120403
  Serious: Yes (Congenital Anomaly)
  Sender: FDA-Public Use
  Company Number: US-UCBSA-045090

PATIENT
  Sex: Male
  Weight: 2.59 kg

DRUGS (8)
  1. KEPPRA XR [Suspect]
     Indication: EPILEPSY
     Route: 064
     Dates: end: 20100121
  2. FIORICET [Concomitant]
     Indication: HEADACHE
     Dosage: 50-235-40 MG PRN
     Route: 064
     Dates: start: 20100412, end: 20100101
  3. FLINSTONE CHILDREN VITAMIN [Concomitant]
     Indication: VITAMIN SUPPLEMENTATION
     Route: 064
     Dates: start: 20100115
  4. BENADRYL [Concomitant]
     Indication: SLEEP DISORDER
     Dosage: AS NEEDED
     Dates: end: 20100731
  5. KEPPRA XR [Suspect]
     Route: 064
     Dates: start: 20100101
  6. MAGNESIUM CITRATE [Concomitant]
     Indication: EPILEPSY
     Route: 064
     Dates: start: 20100801, end: 20100101
  7. MULTI-VITAMINS [Concomitant]
     Indication: VITAMIN SUPPLEMENTATION
     Route: 064
     Dates: end: 20100101
  8. MAGNESIUM HYDROXIDE TAB [Concomitant]
     Indication: DYSPEPSIA
     Dosage: AS NEEDED
     Route: 064
     Dates: start: 20100201, end: 20100101

REACTIONS (13)
  - COUGH [None]
  - WHEEZING [None]
  - HAEMANGIOMA [None]
  - SEASONAL ALLERGY [None]
  - OTITIS MEDIA [None]
  - TORTICOLLIS [None]
  - RHINORRHOEA [None]
  - UMBILICAL HERNIA [None]
  - RASH [None]
  - FOETAL EXPOSURE DURING PREGNANCY [None]
  - LIPOMA [None]
  - UPPER RESPIRATORY TRACT INFECTION [None]
  - CARDIAC MURMUR [None]
